FAERS Safety Report 7450103-2 (Version None)
Quarter: 2011Q2

REPORT INFORMATION
  Report Type: 
  Country: None (occurrence: None)
  Receive Date: 20110428
  Receipt Date: 20110428
  Transmission Date: 20111010
  Serious: Yes (Hospitalization)
  Sender: FDA-Public Use
  Company Number: None

PATIENT
  Age: 74 Year
  Sex: Male
  Weight: 87 kg

DRUGS (1)
  1. VANCOMYCIN [Suspect]
     Indication: STAPHYLOCOCCAL SEPSIS
     Dosage: 750 MG BID IV
     Route: 042
     Dates: start: 20110311, end: 20110314

REACTIONS (3)
  - DRUG LEVEL INCREASED [None]
  - RENAL FAILURE ACUTE [None]
  - DIALYSIS [None]
